FAERS Safety Report 15402722 (Version 1)
Quarter: 2018Q3

REPORT INFORMATION
  Report Type: Spontaneous
  Country: US (occurrence: US)
  Receive Date: 20180917
  Receipt Date: 20180917
  Transmission Date: 20181010
  Serious: Yes (Hospitalization)
  Sender: FDA-Public Use
  Company Number: None

PATIENT
  Age: 71 Year
  Sex: Female
  Weight: 55.35 kg

DRUGS (28)
  1. FUROSEMIDE PROCHLORPERAZINE (COMPAZINE) [Concomitant]
  2. SODIUM CHLORIDE (SALINE NASAL) [Concomitant]
  3. SPIRONOLACTONE (ALDACTONE) [Concomitant]
  4. ATROVENT HFA [Concomitant]
     Active Substance: IPRATROPIUM BROMIDE
  5. CHOLECALCIFEROL (VITAMIN D3) [Concomitant]
  6. CLOTRIMAZOLE (MYCELEX) [Concomitant]
  7. FEXOFENADINE (ALLEGRA) [Concomitant]
  8. FUROSEMIDE. [Concomitant]
     Active Substance: FUROSEMIDE
  9. SYNTHROID [Concomitant]
     Active Substance: LEVOTHYROXINE SODIUM
  10. METOPROLOL?XL (TOPROL XL) [Concomitant]
  11. LIPITOR [Concomitant]
     Active Substance: ATORVASTATIN CALCIUM
  12. POTASSIUM [Concomitant]
     Active Substance: POTASSIUM
  13. RANEXA [Concomitant]
     Active Substance: RANOLAZINE
  14. AMOXICILLIN (AMOXIL) [Concomitant]
  15. POTASSIUM CHLORIDE (K?DUR) [Concomitant]
  16. POLYETHYLENE GLYCOL 3520 (GENERIC MIRALAX) [Concomitant]
  17. RANITIDINE (ZANTAC) [Concomitant]
  18. FLOVENT HFA [Concomitant]
     Active Substance: FLUTICASONE PROPIONATE
  19. NITROGLYCERIN (NITROSTAT) [Concomitant]
  20. OMEGA 3 [Concomitant]
     Active Substance: OMEGA-3 FATTY ACIDS
  21. XARELTO [Concomitant]
     Active Substance: RIVAROXABAN
  22. MULTIVITAMIN [Concomitant]
     Active Substance: VITAMINS
  23. AZELASTINE HCL [Concomitant]
     Active Substance: AZELASTINE HYDROCHLORIDE
  24. ZOFRAN [Concomitant]
     Active Substance: ONDANSETRON HYDROCHLORIDE
  25. SIMETHICONE (DIMETHICONE) [Concomitant]
     Active Substance: DIMETHICONE
  26. PROLIA [Suspect]
     Active Substance: DENOSUMAB
     Indication: OSTEOPOROSIS
     Dosage: ?          QUANTITY:1 INJECTION(S);?
     Route: 030
     Dates: start: 20180212
  27. LEVALBUTEROL TARTRARE (XOPENEX HFA INHALATION) [Concomitant]
  28. ANTI?GAS OTC [Concomitant]

REACTIONS (7)
  - Peripheral swelling [None]
  - Asthenia [None]
  - Oedema [None]
  - Lymphocyte count decreased [None]
  - Blood pressure decreased [None]
  - Chills [None]
  - Cellulitis [None]

NARRATIVE: CASE EVENT DATE: 20180903
